FAERS Safety Report 8713094 (Version 3)
Quarter: 2012Q4

REPORT INFORMATION
  Report Type: 
  Country: JP (occurrence: JP)
  Receive Date: 20120808
  Receipt Date: 20121009
  Transmission Date: 20130627
  Serious: Yes (Other)
  Sender: FDA-Public Use
  Company Number: JP-PFIZER INC-2012187423

PATIENT
  Sex: Female

DRUGS (1)
  1. DALACIN [Suspect]
     Dosage: UNK
     Route: 048
     Dates: start: 20120720

REACTIONS (9)
  - Hypoacusis [Unknown]
  - Malaise [Unknown]
  - Dyspnoea [Recovered/Resolved]
  - Chest discomfort [Unknown]
  - Decreased appetite [Unknown]
  - Throat tightness [Unknown]
  - Dysphonia [Unknown]
  - Musculoskeletal stiffness [Unknown]
  - Trismus [Unknown]
